FAERS Safety Report 5442023-X (Version None)
Quarter: 2007Q3

REPORT INFORMATION
  Report Type: 
  Country: None (occurrence: None)
  Receive Date: 20070904
  Receipt Date: 20070824
  Transmission Date: 20080115
  Serious: Yes (Death)
  Sender: FDA-Public Use
  Company Number: JP-ROCHE-513230

PATIENT
  Age: 78 Year
  Sex: Female
  Weight: 41 kg

DRUGS (7)
  1. DENOSINE IV [Suspect]
     Indication: CYTOMEGALOVIRUS ENTEROCOLITIS
     Dosage: FORM INFUSION. ADMINISTERED AFTER HEMODIALYSIS
     Route: 041
     Dates: start: 20070405, end: 20070405
  2. DENOSINE IV [Suspect]
     Dosage: ADMINISTERED AFTER HEMODIALYSIS
     Route: 041
     Dates: start: 20070407, end: 20070407
  3. DENOSINE IV [Suspect]
     Dosage: ADMINISTERED AFTER HEMODIALYSIS
     Route: 041
     Dates: start: 20070410, end: 20070410
  4. DENOSINE IV [Suspect]
     Dosage: ADMINISTERED AFTER HEMODIALYSIS
     Route: 041
     Dates: start: 20070412, end: 20070412
  5. DENOSINE IV [Suspect]
     Dosage: ADMINISTERED AFTER HEMODIALYSIS
     Route: 041
     Dates: start: 20070414, end: 20070414
  6. STEROID NOS [Concomitant]
     Dates: start: 20060929
  7. MIZORIBINE [Concomitant]
     Dates: start: 20060929

REACTIONS (2)
  - PANCYTOPENIA [None]
  - PULMONARY HAEMORRHAGE [None]
